FAERS Safety Report 9012963 (Version 1)
Quarter: 2013Q1

REPORT INFORMATION
  Report Type: Spontaneous
  Country: JP (occurrence: JP)
  Receive Date: 20130114
  Receipt Date: 20130114
  Transmission Date: 20140127
  Serious: Yes (Hospitalization)
  Sender: FDA-Public Use
  Company Number: JP-GLAXOSMITHKLINE-B0858146A

PATIENT
  Age: 81 Year
  Sex: Female

DRUGS (12)
  1. VALTREX [Suspect]
     Indication: HERPES ZOSTER
     Dosage: 400MG TWICE PER DAY
     Route: 048
     Dates: start: 20130104, end: 20130104
  2. LYRICA [Suspect]
     Indication: PRODUCT USED FOR UNKNOWN INDICATION
     Route: 048
     Dates: start: 20130104, end: 20130104
  3. ARASENA-A [Concomitant]
     Route: 061
  4. AMARYL [Concomitant]
     Route: 048
  5. LIPITOR [Concomitant]
     Route: 048
  6. NORVASC [Concomitant]
     Route: 048
  7. METGLUCO [Concomitant]
     Route: 048
  8. BLOPRESS [Concomitant]
     Route: 048
  9. JANUVIA [Concomitant]
     Route: 048
  10. FERROMIA [Concomitant]
     Route: 048
  11. NEXIUM [Concomitant]
     Route: 048
  12. ARICEPT [Concomitant]
     Route: 048

REACTIONS (2)
  - Convulsion [Recovered/Resolved]
  - Blood pressure decreased [Recovered/Resolved]
